FAERS Safety Report 9246029 (Version 1)
Quarter: 2013Q2

REPORT INFORMATION
  Report Type: Report from Study
  Country: BR (occurrence: BR)
  Receive Date: 20130422
  Receipt Date: 20130422
  Transmission Date: 20140414
  Serious: Yes (Other)
  Sender: FDA-Public Use
  Company Number: PHHY2013BR038479

PATIENT
  Sex: Female

DRUGS (2)
  1. EXJADE [Suspect]
     Dosage: 500 MG, DAILY
     Route: 048
  2. EXJADE [Suspect]
     Dosage: 625 MG, DAILY
     Route: 048

REACTIONS (1)
  - Urinary tract infection [Unknown]
